FAERS Safety Report 25434099 (Version 3)
Quarter: 2025Q3

REPORT INFORMATION
  Report Type: Spontaneous
  Country: JP (occurrence: JP)
  Receive Date: 20250613
  Receipt Date: 20250715
  Transmission Date: 20251021
  Serious: Yes (Death, Other)
  Sender: NOVARTIS
  Company Number: JP-002147023-NVSC2025JP094541

PATIENT

DRUGS (3)
  1. CYCLOSPORINE [Suspect]
     Active Substance: CYCLOSPORINE
     Indication: Prophylaxis against graft versus host disease
     Route: 065
  2. FOSCARNET [Concomitant]
     Active Substance: FOSCARNET
     Indication: Cytomegalovirus enteritis
     Dosage: 90 MG/KG, QD
     Route: 065
  3. GANCICLOVIR [Concomitant]
     Active Substance: GANCICLOVIR
     Indication: Cytomegalovirus enteritis
     Dosage: 5 MG/KG, QD
     Route: 065

REACTIONS (2)
  - Cytomegalovirus enteritis [Fatal]
  - Drug ineffective [Unknown]
